FAERS Safety Report 9842583 (Version 2)
Quarter: 2015Q3

REPORT INFORMATION
  Report Type: Spontaneous
  Country: US (occurrence: US)
  Receive Date: 20140124
  Receipt Date: 20150730
  Transmission Date: 20151125
  Serious: Yes (Hospitalization)
  Sender: FDA-Public Use
  Company Number: US-GILEAD-2012-0049674

PATIENT
  Age: 84 Year
  Sex: Female

DRUGS (4)
  1. RANEXA [Suspect]
     Active Substance: RANOLAZINE
     Dosage: 500 MG, BID
     Route: 048
  2. RANEXA [Suspect]
     Active Substance: RANOLAZINE
     Indication: PRODUCT USED FOR UNKNOWN INDICATION
     Dosage: 1000 MG, BID
     Route: 048
  3. RANEXA [Suspect]
     Active Substance: RANOLAZINE
     Dosage: 1000 MG, BID
     Route: 048
  4. RANEXA [Suspect]
     Active Substance: RANOLAZINE
     Dosage: 500 MG, BID
     Route: 048

REACTIONS (2)
  - Tremor [Unknown]
  - Asthenia [Unknown]

NARRATIVE: CASE EVENT DATE: 20111209
